FAERS Safety Report 5756092-0 (Version None)
Quarter: 2008Q2

REPORT INFORMATION
  Report Type: 
  Country: None (occurrence: None)
  Receive Date: 20080528
  Receipt Date: 20080509
  Transmission Date: 20081010
  Serious: Yes (Other)
  Sender: FDA-Public Use
  Company Number: 2008AL004521

PATIENT
  Age: 87 Year
  Sex: Female
  Weight: 65.7716 kg

DRUGS (16)
  1. DIGOXIN [Suspect]
     Indication: ATRIAL FIBRILLATION
     Dosage: 0.125/0.25 MG PO
     Route: 048
  2. EXELON [Concomitant]
  3. ENABLEX [Concomitant]
  4. ASPIRIN [Concomitant]
  5. CENTRUM [Concomitant]
  6. LANOXIN [Concomitant]
  7. CRANBERRY [Concomitant]
  8. MIRTAZAPINE [Concomitant]
  9. LISINOPRIL [Concomitant]
  10. NAMENDA [Concomitant]
  11. ZOLOFT [Concomitant]
  12. LASIX [Concomitant]
  13. DILTIAZEM [Concomitant]
  14. METOPROLOL TARTRATE [Concomitant]
  15. HYDROCHLOROTHIAZIDE [Concomitant]
  16. COUMADIN [Concomitant]

REACTIONS (2)
  - FALL [None]
  - HEAD INJURY [None]
